FAERS Safety Report 13770646 (Version 2)
Quarter: 2017Q4

REPORT INFORMATION
  Report Type: Spontaneous
  Country: AR (occurrence: AR)
  Receive Date: 20170719
  Receipt Date: 20171227
  Transmission Date: 20180320
  Serious: Yes (Death, Other)
  Sender: FDA-Public Use
  Company Number: AR-BAYER-2017-133343

PATIENT
  Age: 57 Year
  Sex: Male

DRUGS (2)
  1. STIVARGA [Suspect]
     Active Substance: REGORAFENIB
     Indication: COLON CANCER METASTATIC
     Dosage: 160 MG DAILY DOSE, FOR 21 DAYS/ 7 REST
     Route: 048
     Dates: start: 20160321
  2. OXALIPLATIN. [Concomitant]
     Active Substance: OXALIPLATIN
     Dosage: UNK
     Dates: start: 201611, end: 201701

REACTIONS (7)
  - Metastases to lung [None]
  - Palmar-plantar erythrodysaesthesia syndrome [None]
  - Colon cancer metastatic [Fatal]
  - General physical health deterioration [Fatal]
  - Metastases to liver [None]
  - Mucosal inflammation [None]
  - Carcinoembryonic antigen decreased [None]

NARRATIVE: CASE EVENT DATE: 201606
